FAERS Safety Report 10891106 (Version 1)
Quarter: 2015Q1

REPORT INFORMATION
  Report Type: Spontaneous
  Country: GB (occurrence: GB)
  Receive Date: 20150305
  Receipt Date: 20150305
  Transmission Date: 20150721
  Serious: Yes (Disabling, Other)
  Sender: FDA-Public Use
  Company Number: GB-TEVA-544264ACC

PATIENT
  Age: 53 Year
  Sex: Female
  Weight: 66.67 kg

DRUGS (5)
  1. NIFEDIPINE. [Suspect]
     Active Substance: NIFEDIPINE
     Indication: PERIPHERAL COLDNESS
     Dosage: 10 MILLIGRAM DAILY;
     Route: 048
     Dates: start: 20141101, end: 20150101
  2. ZONEGRAN [Concomitant]
     Active Substance: ZONISAMIDE
     Indication: EPILEPSY
     Dosage: 200 MILLIGRAM DAILY;
  3. KEPPRA [Concomitant]
     Active Substance: LEVETIRACETAM
     Indication: EPILEPSY
     Dosage: 3500 MILLIGRAM DAILY;
  4. SOLIFENACIN [Concomitant]
     Active Substance: SOLIFENACIN
  5. IBUPROFEN. [Concomitant]
     Active Substance: IBUPROFEN

REACTIONS (4)
  - Sluggishness [Recovering/Resolving]
  - Headache [Recovering/Resolving]
  - Bradyphrenia [Recovering/Resolving]
  - Disorientation [Recovering/Resolving]

NARRATIVE: CASE EVENT DATE: 201412
